FAERS Safety Report 23826179 (Version 1)
Quarter: 2024Q2

REPORT INFORMATION
  Report Type: Spontaneous
  Country: US (occurrence: US)
  Receive Date: 20240507
  Receipt Date: 20240507
  Transmission Date: 20240715
  Serious: No
  Sender: FDA-Public Use
  Company Number: US-INSUD PHARMA-2405US03728

PATIENT

DRUGS (2)
  1. SLYND [Suspect]
     Active Substance: DROSPIRENONE
     Indication: Product used for unknown indication
     Dosage: UNK
     Route: 048
     Dates: start: 202403
  2. SLYND [Suspect]
     Active Substance: DROSPIRENONE
     Dosage: UNK
     Route: 048
     Dates: start: 2023, end: 2023

REACTIONS (4)
  - Migraine [Not Recovered/Not Resolved]
  - Increased appetite [Not Recovered/Not Resolved]
  - Therapeutic response unexpected [Unknown]
  - Lack of satiety [Not Recovered/Not Resolved]

NARRATIVE: CASE EVENT DATE: 20230101
